FAERS Safety Report 11643953 (Version 1)
Quarter: 2015Q4

REPORT INFORMATION
  Report Type: Spontaneous
  Country: US (occurrence: None)
  Receive Date: 20151019
  Receipt Date: 20151019
  Transmission Date: 20160304
  Serious: Yes (Disabling)
  Sender: FDA-Public Use
  Company Number: None

PATIENT
  Age: 42 Year
  Sex: Female
  Weight: 53.07 kg

DRUGS (8)
  1. MULTIVITAMIN [Concomitant]
     Active Substance: VITAMINS
  2. MAGNESIUM [Concomitant]
     Active Substance: MAGNESIUM
  3. LEVAQUIN [Suspect]
     Active Substance: LEVOFLOXACIN
     Indication: SINUSITIS
     Route: 048
     Dates: start: 20120901, end: 20120907
  4. ZANTAC [Concomitant]
     Active Substance: RANITIDINE HYDROCHLORIDE
  5. KLONOPIN [Concomitant]
     Active Substance: CLONAZEPAM
  6. ALLEGRA [Concomitant]
     Active Substance: FEXOFENADINE HYDROCHLORIDE
  7. CALCIUM [Concomitant]
     Active Substance: CALCIUM
  8. VITAMIN E [Concomitant]
     Active Substance: .ALPHA.-TOCOPHEROL

REACTIONS (24)
  - Muscle twitching [None]
  - Fatigue [None]
  - Amylase increased [None]
  - Exercise lack of [None]
  - Iodine uptake decreased [None]
  - Malabsorption [None]
  - Blood zinc decreased [None]
  - Rash pruritic [None]
  - Hypersensitivity [None]
  - White blood cell count decreased [None]
  - Weight decreased [None]
  - Back pain [None]
  - Eye disorder [None]
  - Malaise [None]
  - Mental disorder [None]
  - Blood copper decreased [None]
  - Thyroid disorder [None]
  - Dizziness [None]
  - Photosensitivity reaction [None]
  - Feeling abnormal [None]
  - Hypoaesthesia [None]
  - Confusional state [None]
  - Visual impairment [None]
  - Pancreatitis [None]

NARRATIVE: CASE EVENT DATE: 20120901
